FAERS Safety Report 17508315 (Version 2)
Quarter: 2020Q2

REPORT INFORMATION
  Report Type: Spontaneous
  Country: US (occurrence: US)
  Receive Date: 20200306
  Receipt Date: 20200417
  Transmission Date: 20200713
  Serious: Yes (Death, Hospitalization, Other)
  Sender: FDA-Public Use
  Company Number: US-009507513-2002USA010602

PATIENT
  Sex: Male
  Weight: 79.82 kg

DRUGS (5)
  1. VICTOZA [Suspect]
     Active Substance: LIRAGLUTIDE
     Dosage: 0.6 MILLIGRAM ONCE DAILY
     Dates: start: 20140610, end: 20140617
  2. VICTOZA [Suspect]
     Active Substance: LIRAGLUTIDE
     Dosage: UNK, ONCE DAILY
     Dates: start: 20170117, end: 20170321
  3. JANUMET [Suspect]
     Active Substance: METFORMIN HYDROCHLORIDE\SITAGLIPTIN PHOSPHATE
     Dosage: 50/1000 MG TWICE DAILY
     Route: 048
     Dates: start: 20150120, end: 201505
  4. VICTOZA [Suspect]
     Active Substance: LIRAGLUTIDE
     Dosage: 1.2 MILLIGRAM ONCE DAILY
     Dates: start: 20140618, end: 20141106
  5. VICTOZA [Suspect]
     Active Substance: LIRAGLUTIDE
     Dosage: UNK, ONCE DAILY
     Dates: start: 20171114, end: 20180326

REACTIONS (4)
  - Pancreatic carcinoma stage IV [Not Recovered/Not Resolved]
  - Death [Fatal]
  - Resting tremor [Unknown]
  - Decubitus ulcer [Not Recovered/Not Resolved]

NARRATIVE: CASE EVENT DATE: 2017
